FAERS Safety Report 6116519-1 (Version None)
Quarter: 2009Q1

REPORT INFORMATION
  Report Type: 
  Country: None (occurrence: None)
  Receive Date: 20090314
  Receipt Date: 20081215
  Transmission Date: 20090719
  Serious: No
  Sender: FDA-Public Use
  Company Number: US-ABBOTT-08P-163-0493233-00

PATIENT
  Sex: Female
  Weight: 99.88 kg

DRUGS (5)
  1. HUMIRA [Suspect]
     Indication: RHEUMATOID ARTHRITIS
     Route: 058
     Dates: start: 20081124
  2. HUMIRA [Suspect]
     Route: 058
  3. XANAX [Concomitant]
     Indication: PANIC ATTACK
  4. OXYCODONE HCL [Concomitant]
     Indication: PAIN
  5. PLAQUENIL [Concomitant]
     Indication: DRUG USE FOR UNKNOWN INDICATION
     Dates: start: 20050101

REACTIONS (4)
  - BRONCHOPNEUMONIA [None]
  - HEADACHE [None]
  - SINUS CONGESTION [None]
  - SINUS HEADACHE [None]
